FAERS Safety Report 4706210-8 (Version None)
Quarter: 2005Q2

REPORT INFORMATION
  Report Type: 
  Country: None (occurrence: None)
  Receive Date: 20050627
  Receipt Date: 20050406
  Transmission Date: 20051028
  Serious: No
  Sender: FDA-Public Use
  Company Number: IND-AE-05-SAN-016

PATIENT
  Age: 60 Year
  Sex: Male
  Weight: 86.1834 kg

DRUGS (5)
  1. SANCTURA [Suspect]
     Indication: HYPERTONIC BLADDER
     Dosage: 20MG-BID-ORAL
     Route: 048
     Dates: start: 20050402, end: 20050405
  2. LIORESAL [Concomitant]
  3. YOHIMBINE [Concomitant]
  4. SERZONE [Concomitant]
  5. PROVIGIL [Concomitant]

REACTIONS (1)
  - FATIGUE [None]
